FAERS Safety Report 21203559 (Version 1)
Quarter: 2022Q3

REPORT INFORMATION
  Report Type: Spontaneous
  Country: US (occurrence: US)
  Receive Date: 20220811
  Receipt Date: 20220811
  Transmission Date: 20221027
  Serious: No
  Sender: FDA-Public Use
  Company Number: US-TEVA-2022-US-2060598

PATIENT
  Age: 48 Year
  Sex: Female
  Weight: 67.59 kg

DRUGS (2)
  1. QVAR REDIHALER [Suspect]
     Active Substance: BECLOMETHASONE DIPROPIONATE
     Indication: Asthma
     Dosage: 80 MCG/DOSE   ,1 DOSE EVERY 12 HOURS
     Route: 065
  2. Prasco made Albuterol Sulfate [Concomitant]
     Indication: Product used for unknown indication

REACTIONS (3)
  - Visual impairment [Unknown]
  - Incorrect dose administered by device [Unknown]
  - Wrong technique in device usage process [Unknown]

NARRATIVE: CASE EVENT DATE: 20220101
